FAERS Safety Report 8598953-3 (Version None)
Quarter: 2012Q3

REPORT INFORMATION
  Report Type: 
  Country: None (occurrence: None)
  Receive Date: 20120816
  Receipt Date: 19910909
  Transmission Date: 20120928
  Serious: Yes (Other)
  Sender: FDA-Public Use
  Company Number: US-ROCHE-1101525

PATIENT
  Age: 48 Year
  Sex: Female

DRUGS (2)
  1. ACTIVASE [Suspect]
     Indication: ACUTE MYOCARDIAL INFARCTION
     Dates: start: 19910813
  2. TENORMIN [Concomitant]

REACTIONS (6)
  - BLOOD CREATINE PHOSPHOKINASE INCREASED [None]
  - NAUSEA [None]
  - WHITE BLOOD CELL COUNT INCREASED [None]
  - HAEMATOCRIT DECREASED [None]
  - URINE OUTPUT DECREASED [None]
  - BRADYCARDIA [None]
